FAERS Safety Report 6538926-5 (Version None)
Quarter: 2010Q1

REPORT INFORMATION
  Report Type: 
  Country: None (occurrence: None)
  Receive Date: 20100115
  Receipt Date: 20100111
  Transmission Date: 20100710
  Serious: Yes (Other)
  Sender: FDA-Public Use
  Company Number: US-ROCHE-678925

PATIENT
  Sex: Female
  Weight: 44.5 kg

DRUGS (4)
  1. BONIVA [Suspect]
     Indication: OSTEOPENIA
     Route: 048
     Dates: start: 20090801, end: 20091212
  2. PROTONIX [Concomitant]
  3. TRAZODONE HCL [Concomitant]
     Dosage: DRUG REPORTED: TRAZADONE
  4. XANAX [Concomitant]

REACTIONS (8)
  - ARTHRALGIA [None]
  - BACK PAIN [None]
  - DYSPHAGIA [None]
  - FATIGUE [None]
  - FEELING COLD [None]
  - HYPOGLYCAEMIA [None]
  - LACRIMATION INCREASED [None]
  - PHOTOPHOBIA [None]
